FAERS Safety Report 7833622-6 (Version None)
Quarter: 2011Q4

REPORT INFORMATION
  Report Type: 
  Country: None (occurrence: None)
  Receive Date: 20111024
  Receipt Date: 20111010
  Transmission Date: 20120403
  Serious: Yes (Other)
  Sender: FDA-Public Use
  Company Number: GB-MYLANLABS-2011S1017226

PATIENT
  Age: 47 Year
  Sex: Male

DRUGS (12)
  1. FLUOXETINE [Suspect]
     Indication: OBSESSIVE-COMPULSIVE DISORDER
  2. CLOZAPINE [Suspect]
     Indication: OBSESSIVE-COMPULSIVE DISORDER
     Dates: start: 20090728
  3. CLOZAPINE [Suspect]
  4. CLOZAPINE [Suspect]
  5. FLUOXETINE [Suspect]
     Indication: SCHIZOPHRENIA
  6. CLOZAPINE [Suspect]
  7. HYOSCINE [Concomitant]
     Indication: SALIVARY HYPERSECRETION
     Route: 048
     Dates: start: 20090701
  8. CLOZAPINE [Suspect]
     Indication: SCHIZOPHRENIA
     Dates: start: 20090728
  9. CLOZAPINE [Suspect]
  10. CLOZAPINE [Suspect]
  11. OMEPRAZOLE [Concomitant]
     Indication: PRODUCT USED FOR UNKNOWN INDICATION
  12. CLOZAPINE [Suspect]

REACTIONS (12)
  - CONSTIPATION [None]
  - HYPERHIDROSIS [None]
  - LETHARGY [None]
  - BLOOD ALKALINE PHOSPHATASE INCREASED [None]
  - DECREASED APPETITE [None]
  - DIARRHOEA [None]
  - ABDOMINAL PAIN [None]
  - C-REACTIVE PROTEIN INCREASED [None]
  - PROTEIN TOTAL DECREASED [None]
  - DRUG INTERACTION [None]
  - COUGH [None]
  - WEIGHT DECREASED [None]
